FAERS Safety Report 6707066-4 (Version None)
Quarter: 2010Q2

REPORT INFORMATION
  Report Type: 
  Country: None (occurrence: None)
  Receive Date: 20100429
  Receipt Date: 20100414
  Transmission Date: 20101027
  Serious: Yes (Hospitalization, Other)
  Sender: FDA-Public Use
  Company Number: 2010025103

PATIENT
  Age: 47 Year
  Sex: Male
  Weight: 117 kg

DRUGS (1)
  1. FRAGMIN [Suspect]
     Indication: DEEP VEIN THROMBOSIS
     Dosage: 18000 IU, 1X/DAY, SUBCUTANEOUS
     Route: 058

REACTIONS (4)
  - HAEMODIALYSIS [None]
  - PRODUCT QUALITY ISSUE [None]
  - RENAL FAILURE ACUTE [None]
  - THROMBOSIS [None]
